FAERS Safety Report 13651021 (Version 1)
Quarter: 2017Q2

REPORT INFORMATION
  Report Type: Report from Study
  Country: CA (occurrence: CA)
  Receive Date: 20170614
  Receipt Date: 20170614
  Transmission Date: 20170830
  Serious: Yes (Other)
  Sender: FDA-Public Use
  Company Number: CA-GLAXOSMITHKLINE-CA2017GSK091385

PATIENT
  Sex: Female

DRUGS (1)
  1. SALBUTAMOL SULPHATE [Suspect]
     Active Substance: ALBUTEROL SULFATE
     Indication: PRODUCT USED FOR UNKNOWN INDICATION
     Dosage: UNK

REACTIONS (16)
  - Coronary artery disease [Unknown]
  - Productive cough [Not Recovered/Not Resolved]
  - Hysterectomy [Unknown]
  - Irritable bowel syndrome [Unknown]
  - Cholecystectomy [Unknown]
  - Acute myocardial infarction [Unknown]
  - Asthma [Not Recovered/Not Resolved]
  - Dyspnoea [Not Recovered/Not Resolved]
  - Varicose vein [Unknown]
  - Hypothyroidism [Unknown]
  - Cough [Not Recovered/Not Resolved]
  - Hypertension [Unknown]
  - Atrioventricular block [Unknown]
  - Fibromyalgia [Unknown]
  - Wheezing [Not Recovered/Not Resolved]
  - Carcinoid tumour [Unknown]
